FAERS Safety Report 17857516 (Version 1)
Quarter: 2020Q2

REPORT INFORMATION
  Report Type: Report from Study
  Country: US (occurrence: US)
  Receive Date: 20200604
  Receipt Date: 20200604
  Transmission Date: 20200714
  Serious: Yes (Hospitalization)
  Sender: FDA-Public Use
  Company Number: US-BIOGEN-2020BI00882477

PATIENT
  Age: 60 Year
  Sex: Female

DRUGS (1)
  1. TECFIDERA [Suspect]
     Active Substance: DIMETHYL FUMARATE
     Indication: MULTIPLE SCLEROSIS
     Dosage: MAINTENANCE DOSE
     Route: 048
     Dates: start: 20141014

REACTIONS (5)
  - Muscle spasticity [Unknown]
  - Fall [Recovered/Resolved]
  - Pain in extremity [Not Recovered/Not Resolved]
  - Hypotonia [Not Recovered/Not Resolved]
  - Lower limb fracture [Recovered/Resolved]

NARRATIVE: CASE EVENT DATE: 2016
